FAERS Safety Report 11880525 (Version 2)
Quarter: 2016Q1

REPORT INFORMATION
  Report Type: Report from Study
  Country: US (occurrence: US)
  Receive Date: 20151230
  Receipt Date: 20160112
  Transmission Date: 20160526
  Serious: Yes (Hospitalization)
  Sender: FDA-Public Use
  Company Number: US-GLAXOSMITHKLINE-US2015181922

PATIENT
  Age: 64 Year
  Sex: Male
  Weight: 48.5 kg

DRUGS (1)
  1. FLUTICASONE FUR+UMECLIDINIUM+VILANTEROL [Suspect]
     Active Substance: FLUTICASONE FUROATE\UMECLIDINIUM BROMIDE\VILANTEROL TRIFENATATE
     Indication: CHRONIC OBSTRUCTIVE PULMONARY DISEASE
     Dosage: 1 PUFF(S), QD
     Route: 055
     Dates: start: 20141202

REACTIONS (3)
  - Chronic obstructive pulmonary disease [Recovered/Resolved]
  - Tobacco abuse [Not Recovered/Not Resolved]
  - Cardiovascular deconditioning [Not Recovered/Not Resolved]

NARRATIVE: CASE EVENT DATE: 20151222
